APPROVED DRUG PRODUCT: TESTOSTERONE
Active Ingredient: TESTOSTERONE
Strength: 30MG/1.5ML ACTUATION
Dosage Form/Route: SOLUTION, METERED;TRANSDERMAL
Application: A208061 | Product #001 | TE Code: AT
Applicant: LUPIN LTD
Approved: Oct 23, 2017 | RLD: No | RS: No | Type: RX